FAERS Safety Report 4422672-8 (Version None)
Quarter: 2004Q3

REPORT INFORMATION
  Report Type: 
  Country: None (occurrence: None)
  Receive Date: 20040713
  Receipt Date: 20030324
  Transmission Date: 20050211
  Serious: No
  Sender: FDA-Public Use
  Company Number: PHEH2003US02817

PATIENT
  Sex: Male

DRUGS (2)
  1. ELIDEL [Suspect]
     Dosage: TOPICAL
     Route: 061
  2. ALCOHOL (ETHANOL) [Suspect]

REACTIONS (2)
  - SKIN BURNING SENSATION [None]
  - SKIN IRRITATION [None]
